FAERS Safety Report 6429437-6 (Version None)
Quarter: 2009Q4

REPORT INFORMATION
  Report Type: 
  Country: None (occurrence: None)
  Receive Date: 20091105
  Receipt Date: 20090611
  Transmission Date: 20100525
  Serious: No
  Sender: FDA-Public Use
  Company Number: US-ABBOTT-09P-163-0579482-00

PATIENT
  Sex: Male
  Weight: 95.34 kg

DRUGS (2)
  1. KALETRA [Suspect]
     Indication: HIV TEST POSITIVE
     Dosage: TAKES 4 TABS BID
     Route: 048
     Dates: start: 20050101
  2. TRAVADA [Concomitant]
     Indication: HIV TEST POSITIVE
     Route: 048

REACTIONS (4)
  - DIARRHOEA [None]
  - FOOD POISONING [None]
  - NAUSEA [None]
  - VOMITING [None]
